FAERS Safety Report 8806467 (Version 1)
Quarter: 2012Q4

REPORT INFORMATION
  Report Type: Spontaneous
  Country: US (occurrence: None)
  Receive Date: 20120918
  Receipt Date: 20120918
  Transmission Date: 20130627
  Serious: No
  Sender: FDA-Public Use
  Company Number: None

PATIENT

DRUGS (2)
  1. LASIX [Suspect]
     Dosage: Injectable, injection, (10 mg/ml), single vials, 4 ml
  2. METOPROLOL TARTRATE [Suspect]
     Dosage: Injectable, injection, /5ml, single dose vials, 5 ml

REACTIONS (2)
  - Circumstance or information capable of leading to medication error [None]
  - Drug label confusion [None]
